FAERS Safety Report 14925929 (Version 1)
Quarter: 2018Q2

REPORT INFORMATION
  Report Type: Spontaneous
  Country: FR (occurrence: FR)
  Receive Date: 20180522
  Receipt Date: 20180522
  Transmission Date: 20180711
  Serious: Yes (Hospitalization)
  Sender: FDA-Public Use
  Company Number: FR-TEVA-2018-FR-894410

PATIENT
  Age: 40 Year
  Sex: Female

DRUGS (5)
  1. PYOSTACINE [Suspect]
     Active Substance: PRISTINAMYCIN
     Indication: DYSPNOEA
     Route: 048
     Dates: start: 20170922
  2. PIVALONE (TIXOCORTOL PIVALATE) [Suspect]
     Active Substance: TIXOCORTOL PIVALATE
     Indication: DYSPNOEA
     Route: 045
     Dates: start: 20170922
  3. HELICIDINE 10 PERCENT SYRUP [Suspect]
     Active Substance: ESCARGOT
     Indication: COUGH
     Route: 048
     Dates: start: 20170922
  4. VISIPAQUE [Suspect]
     Active Substance: IODIXANOL
     Indication: COMPUTERISED TOMOGRAM
     Route: 042
     Dates: start: 20171018, end: 20171018
  5. PREDNISOLONE. [Suspect]
     Active Substance: PREDNISOLONE
     Indication: DYSPNOEA
     Route: 048
     Dates: start: 20170922

REACTIONS (1)
  - Rash maculo-papular [Recovered/Resolved]

NARRATIVE: CASE EVENT DATE: 20171020
